FAERS Safety Report 9742511 (Version 1)
Quarter: 2013Q4

REPORT INFORMATION
  Report Type: Spontaneous
  Country: US (occurrence: US)
  Receive Date: 20131210
  Receipt Date: 20131210
  Transmission Date: 20140711
  Serious: Yes (Hospitalization)
  Sender: FDA-Public Use
  Company Number: US-ENDO PHARMACEUTICALS INC.-PRED20130012

PATIENT
  Age: 74 Year
  Sex: Female
  Weight: 70.45 kg

DRUGS (4)
  1. PREDNISONE TABLETS [Suspect]
     Indication: DERMATOMYOSITIS
     Dosage: 60MG
     Route: 048
     Dates: start: 2006
  2. PREDNISONE TABLETS [Suspect]
     Route: 048
  3. CELLCEPT [Concomitant]
     Indication: DERMATOMYOSITIS
     Dosage: UNK
     Route: 065
     Dates: start: 2012, end: 201208
  4. GAMMAGARD [Concomitant]
     Indication: DERMATOMYOSITIS
     Dosage: UNK
     Route: 042

REACTIONS (1)
  - Pneumonia [Not Recovered/Not Resolved]
